FAERS Safety Report 17690305 (Version 1)
Quarter: 2020Q2

REPORT INFORMATION
  Report Type: Spontaneous
  Country: KZ (occurrence: KZ)
  Receive Date: 20200421
  Receipt Date: 20200421
  Transmission Date: 20200714
  Serious: Yes (Death, Other)
  Sender: FDA-Public Use
  Company Number: NVSC2020KZ107163

PATIENT
  Age: 43 Year
  Sex: Female
  Weight: 34 kg

DRUGS (6)
  1. LINEZOLID. [Suspect]
     Active Substance: LINEZOLID
     Indication: TUBERCULOSIS
     Dosage: 600 MG, QD
     Route: 048
     Dates: end: 20200105
  2. IMIPENEM [Suspect]
     Active Substance: IMIPENEM
     Indication: TUBERCULOSIS
     Dosage: 2000 MG, QD
     Route: 042
     Dates: end: 20180907
  3. BEDAQUILINE [Suspect]
     Active Substance: BEDAQUILINE
     Indication: TUBERCULOSIS
     Dosage: QD
     Route: 048
     Dates: end: 20190105
  4. AMOXI-CLAV [Suspect]
     Active Substance: AMOXICILLIN\CLAVULANATE POTASSIUM
     Indication: TUBERCULOSIS
     Dosage: 2000 MG, QD
     Route: 048
     Dates: end: 20190907
  5. DELTYBA [Suspect]
     Active Substance: DELAMANID
     Indication: TUBERCULOSIS
     Dosage: 200 MG, QD
     Route: 048
     Dates: end: 20190123
  6. CLOFAZIMINE [Suspect]
     Active Substance: CLOFAZIMINE
     Indication: TUBERCULOSIS
     Dosage: 200 MG, QD
     Route: 048
     Dates: end: 20200105

REACTIONS (10)
  - Acute respiratory failure [Fatal]
  - Pneumonia [Unknown]
  - Hepatic steatosis [Unknown]
  - Interstitial lung disease [Unknown]
  - Incorrect product administration duration [Unknown]
  - Tremor [Unknown]
  - Hypothermia [Unknown]
  - Deafness neurosensory [Unknown]
  - General physical health deterioration [Unknown]
  - Product use in unapproved indication [Unknown]

NARRATIVE: CASE EVENT DATE: 20180111
